FAERS Safety Report 4355742-3 (Version None)
Quarter: 2004Q2

REPORT INFORMATION
  Report Type: 
  Country: None (occurrence: None)
  Receive Date: 20040505
  Receipt Date: 20040319
  Transmission Date: 20050107
  Serious: Yes (Hospitalization)
  Sender: FDA-Public Use
  Company Number: I04-341-040

PATIENT
  Age: 55 Year
  Sex: Male

DRUGS (1)
  1. VELCADE [Suspect]
     Indication: MULTIPLE MYELOMA
     Dosage: 2 DAYS OUT OF 7: INTRAVENOUS (NOT OTHERWISE SPECIFIED)
     Route: 042
     Dates: start: 20040101, end: 20040229

REACTIONS (2)
  - CYTOLYTIC HEPATITIS [None]
  - PANCREATITIS ACUTE [None]
